FAERS Safety Report 10034993 (Version 1)
Quarter: 2014Q1

REPORT INFORMATION
  Report Type: Spontaneous
  Country: US (occurrence: US)
  Receive Date: 20140325
  Receipt Date: 20140325
  Transmission Date: 20141002
  Serious: Yes (Other)
  Sender: FDA-Public Use
  Company Number: US-009507513-1403USA008887

PATIENT
  Age: 76 Year
  Sex: Male

DRUGS (4)
  1. DULERA [Suspect]
     Dosage: 2 PUFFS TWICE A DAY
     Route: 055
  2. NASONEX [Concomitant]
     Dosage: UNK
     Route: 045
  3. PROAIR (ALBUTEROL SULFATE) [Concomitant]
     Dosage: UNK
  4. SPIRIVA [Concomitant]
     Dosage: UNK

REACTIONS (3)
  - Aphonia [Not Recovered/Not Resolved]
  - Oxygen saturation decreased [Not Recovered/Not Resolved]
  - Dysphonia [Not Recovered/Not Resolved]
